FAERS Safety Report 9695795 (Version 1)
Quarter: 2013Q4

REPORT INFORMATION
  Report Type: Spontaneous
  Country: US (occurrence: None)
  Receive Date: 20131118
  Receipt Date: 20131118
  Transmission Date: 20140711
  Serious: Yes (Hospitalization, Disabling, Other)
  Sender: FDA-Public Use
  Company Number: None

PATIENT
  Age: 37 Year
  Sex: Female
  Weight: 77.11 kg

DRUGS (1)
  1. LUPRON [Suspect]
     Indication: VASCULAR NEOPLASM
     Dosage: SHOT EVERY 3 MONTHS INTO THE MUSCLE.
     Route: 030

REACTIONS (6)
  - Arthralgia [None]
  - Migraine [None]
  - Nerve injury [None]
  - Arthralgia [None]
  - Nausea [None]
  - Impaired work ability [None]
